FAERS Safety Report 4491646-3 (Version None)
Quarter: 2004Q4

REPORT INFORMATION
  Report Type: 
  Country: None (occurrence: None)
  Receive Date: 20041101
  Receipt Date: 20041015
  Transmission Date: 20050328
  Serious: Yes (Hospitalization)
  Sender: FDA-Public Use
  Company Number: 203800

PATIENT
  Age: 66 Year
  Sex: Female

DRUGS (16)
  1. AVONEX [Suspect]
     Indication: MULTIPLE SCLEROSIS
     Dosage: 30 MCG QW IM
     Route: 030
     Dates: start: 20020422
  2. AVONEX [Suspect]
     Indication: MULTIPLE SCLEROSIS
     Dosage: 30 MCG QW IM
     Route: 030
     Dates: start: 20030818
  3. ZANAFLEX [Concomitant]
  4. BACLOFEN [Concomitant]
  5. NEURONTIN [Concomitant]
  6. LASIX [Concomitant]
  7. BETHANECHOL [Concomitant]
  8. HYDROXYZINE [Concomitant]
  9. CEPHALEXIN [Concomitant]
  10. DARVOCET-N 100 [Concomitant]
  11. NIACINAMIDE [Concomitant]
  12. INSULIN [Concomitant]
  13. MULTI-VITAMINS [Concomitant]
  14. CALCIUM [Concomitant]
  15. SILVADENE [Concomitant]
  16. PREDNISONE [Concomitant]

REACTIONS (3)
  - CUSHINGOID [None]
  - PEMPHIGOID [None]
  - SEPSIS [None]
